FAERS Safety Report 21820879 (Version 3)
Quarter: 2023Q1

REPORT INFORMATION
  Report Type: Report from Study
  Country: US (occurrence: US)
  Receive Date: 20230105
  Receipt Date: 20230314
  Transmission Date: 20230418
  Serious: Yes (Other)
  Sender: FDA-Public Use
  Company Number: US-BRISTOL-MYERS SQUIBB COMPANY-2023-000252

PATIENT
  Age: 39 Year
  Sex: Female
  Weight: 73.48 kg

DRUGS (1)
  1. ZEPOSIA [Suspect]
     Active Substance: OZANIMOD HYDROCHLORIDE
     Indication: Multiple sclerosis
     Dosage: DOSE : 0.92 MG, TABLET, FREQ : DAILY
     Route: 048
     Dates: start: 20221118, end: 20221202

REACTIONS (3)
  - Maternal exposure during pregnancy [Recovered/Resolved]
  - Pain [Unknown]
  - Abortion spontaneous [Unknown]

NARRATIVE: CASE EVENT DATE: 20230109
